FAERS Safety Report 14913566 (Version 3)
Quarter: 2018Q3

REPORT INFORMATION
  Report Type: Spontaneous
  Country: IT (occurrence: IT)
  Receive Date: 20180518
  Receipt Date: 20180705
  Transmission Date: 20181010
  Serious: Yes (Life-Threatening, Hospitalization, Other)
  Sender: FDA-Public Use
  Company Number: IT-BRISTOL-MYERS SQUIBB COMPANY-BMS-2018-044882

PATIENT
  Age: 62 Year
  Sex: Female

DRUGS (1)
  1. METFORMIN HYDROCHLORIDE. [Suspect]
     Active Substance: METFORMIN HYDROCHLORIDE
     Indication: TYPE 2 DIABETES MELLITUS
     Dosage: 1 G, TID
     Route: 048

REACTIONS (19)
  - Azotaemia [Recovered/Resolved]
  - Blood bicarbonate decreased [Recovered/Resolved]
  - Somnolence [Recovered/Resolved]
  - Acute kidney injury [Recovered/Resolved]
  - Hypotension [Recovered/Resolved]
  - Blood urea increased [Recovered/Resolved]
  - Abdominal pain [Recovered/Resolved]
  - Metabolic acidosis [Recovering/Resolving]
  - Asthenia [Recovered/Resolved]
  - Drug level increased [Recovering/Resolving]
  - Disease progression [Recovered/Resolved]
  - Bradycardia [Recovered/Resolved]
  - Dehydration [Recovered/Resolved]
  - Sinus tachycardia [Recovered/Resolved]
  - Hyperfibrinogenaemia [Recovered/Resolved]
  - Pyrexia [Recovered/Resolved]
  - Blood creatinine increased [Recovered/Resolved]
  - Base excess negative [Recovered/Resolved]
  - Malaise [Recovered/Resolved]

NARRATIVE: CASE EVENT DATE: 20150203
